FAERS Safety Report 4800819-9 (Version None)
Quarter: 2005Q4

REPORT INFORMATION
  Report Type: 
  Country: None (occurrence: None)
  Receive Date: 20051013
  Receipt Date: 20051013
  Transmission Date: 20060501
  Serious: Yes (Other)
  Sender: FDA-Public Use
  Company Number: None

PATIENT
  Age: 24 Year
  Sex: Male

DRUGS (15)
  1. DILANTIN [Suspect]
     Dosage: SEE IMAGE
     Dates: start: 20050219, end: 20050310
  2. HEPARIN [Concomitant]
  3. CEFOPIME [Concomitant]
  4. VANCOMYCIN [Concomitant]
  5. BACLOFEN [Concomitant]
  6. RANITIDINE [Concomitant]
  7. GENTAMICIN [Concomitant]
  8. METOPROLOL [Concomitant]
  9. LEVOFLOXACIN [Concomitant]
  10. ZOSYN [Concomitant]
  11. KEFZOL [Concomitant]
  12. CHLORHEXIDINE [Concomitant]
  13. HALDOL [Concomitant]
  14. COLACE [Concomitant]
  15. ACETAMIONPHEN [Concomitant]

REACTIONS (7)
  - ALANINE AMINOTRANSFERASE INCREASED [None]
  - ASPARTATE AMINOTRANSFERASE INCREASED [None]
  - BLOOD ALKALINE PHOSPHATASE INCREASED [None]
  - HEPATIC TRAUMA [None]
  - HEPATITIS [None]
  - HEPATOTOXICITY [None]
  - MUSCLE SPASTICITY [None]
